FAERS Safety Report 24255245 (Version 1)
Quarter: 2024Q3

REPORT INFORMATION
  Report Type: Spontaneous
  Country: US (occurrence: None)
  Receive Date: 20240827
  Receipt Date: 20240827
  Transmission Date: 20241017
  Serious: Yes (Hospitalization)
  Sender: Public
  Company Number: None

PATIENT
  Age: 62 Year
  Sex: Female

DRUGS (1)
  1. MEKINIST [Suspect]
     Active Substance: TRAMETINIB DIMETHYL SULFOXIDE
     Indication: Bile duct cancer
     Dosage: FREQUENCY : DAILY;?

REACTIONS (6)
  - Pyrexia [None]
  - Stomatitis [None]
  - Hypersensitivity [None]
  - Contrast media reaction [None]
  - Blood pressure decreased [None]
  - Pruritus [None]
